FAERS Safety Report 23466117 (Version 1)
Quarter: 2024Q1

REPORT INFORMATION
  Report Type: Spontaneous
  Country: US (occurrence: None)
  Receive Date: 20240201
  Receipt Date: 20240201
  Transmission Date: 20240410
  Serious: Yes (Hospitalization)
  Sender: FDA-Public Use
  Company Number: US-ROCHE-3498876

PATIENT
  Age: 14 Year
  Sex: Female

DRUGS (2)
  1. HEMLIBRA [Suspect]
     Active Substance: EMICIZUMAB-KXWH
     Indication: Von Willebrand^s disease
     Dosage: 105 MG/.7 ML
     Route: 058
     Dates: start: 202003
  2. HEMLIBRA [Suspect]
     Active Substance: EMICIZUMAB-KXWH
     Dosage: 60 MG/ 0.4 ML
     Route: 058
     Dates: start: 202003

REACTIONS (1)
  - Haemorrhage [Recovered/Resolved]

NARRATIVE: CASE EVENT DATE: 20240116
